FAERS Safety Report 12904792 (Version 1)
Quarter: 2016Q4

REPORT INFORMATION
  Report Type: Spontaneous
  Country: HK (occurrence: HK)
  Receive Date: 20161102
  Receipt Date: 20161102
  Transmission Date: 20170207
  Serious: Yes (Death, Hospitalization)
  Sender: FDA-Public Use
  Company Number: HK-CORDEN PHARMA LATINA S.P.A.-HK-2016COR000233

PATIENT
  Age: 26 Year
  Sex: Male

DRUGS (3)
  1. CISPLATIN. [Suspect]
     Active Substance: CISPLATIN
     Indication: METASTASES TO SPINE
     Dosage: 20 MG/M2, ON DAY 1-5
  2. ETOPOSIDE. [Suspect]
     Active Substance: ETOPOSIDE
     Indication: METASTASES TO SPINE
     Dosage: 100 MG/M2, ON DAY 1-5
  3. BLEOMYCIN [Suspect]
     Active Substance: BLEOMYCIN SULFATE
     Indication: METASTASES TO SPINE
     Dosage: 30 MG, ON DAY 2, 6, 16 ON 3-WEEK CYCLE

REACTIONS (9)
  - Lung infiltration [Fatal]
  - Dyspnoea [Fatal]
  - Lymphocyte count abnormal [Fatal]
  - Respiratory failure [Fatal]
  - Pneumothorax [Not Recovered/Not Resolved]
  - Subcutaneous emphysema [Not Recovered/Not Resolved]
  - Pneumocystis jirovecii pneumonia [Fatal]
  - Pyrexia [Fatal]
  - Computerised tomogram thorax abnormal [Fatal]
